FAERS Safety Report 17148983 (Version 1)
Quarter: 2019Q4

REPORT INFORMATION
  Report Type: Spontaneous
  Country: DE (occurrence: DE)
  Receive Date: 20191213
  Receipt Date: 20191213
  Transmission Date: 20200122
  Serious: Yes (Other)
  Sender: FDA-Public Use
  Company Number: DE-ROCHE-2388956

PATIENT
  Sex: Female

DRUGS (12)
  1. RITUXIMAB. [Suspect]
     Active Substance: RITUXIMAB
     Dosage: FURTHER LINES, R-CHOP 21
     Route: 041
     Dates: start: 201708, end: 201711
  2. RITUXIMAB. [Suspect]
     Active Substance: RITUXIMAB
     Indication: DIFFUSE LARGE B-CELL LYMPHOMA
     Dosage: 7 X 1400 MG, 1 ST LINE 8 CYCLES.
     Route: 058
     Dates: start: 201708, end: 201711
  3. RITUXIMAB. [Suspect]
     Active Substance: RITUXIMAB
     Dosage: ALLOGENEIC EBV, SPECIFIC CTI
     Route: 041
     Dates: start: 201808, end: 201811
  4. CYCLOPHOSPHAMIDE. [Suspect]
     Active Substance: CYCLOPHOSPHAMIDE
     Indication: DIFFUSE LARGE B-CELL LYMPHOMA
     Dosage: 4 CYCLES.
     Route: 065
     Dates: start: 201708, end: 201711
  5. CICLOSPORIN [Suspect]
     Active Substance: CYCLOSPORINE
     Indication: RENAL TRANSPLANT
     Dosage: 140 MG/DAY.
     Route: 065
     Dates: start: 1994
  6. RITUXIMAB. [Suspect]
     Active Substance: RITUXIMAB
     Dosage: 2ND LINE, BORTEZOMIB, 1.3 MG/M2
     Route: 041
     Dates: start: 201705, end: 201707
  7. METHYLPREDNISOLONE. [Suspect]
     Active Substance: METHYLPREDNISOLONE
     Indication: RENAL TRANSPLANT
     Dosage: 4 MG/DAY.
     Route: 065
     Dates: start: 1994
  8. BORTEZOMIB. [Suspect]
     Active Substance: BORTEZOMIB
     Indication: DIFFUSE LARGE B-CELL LYMPHOMA
     Dosage: 2ND LINE 7 CYCLES.
     Route: 065
     Dates: start: 201705, end: 201707
  9. VINCRISTINE [Suspect]
     Active Substance: VINCRISTINE
     Indication: DIFFUSE LARGE B-CELL LYMPHOMA
     Dosage: 4 CYCLES.
     Route: 065
     Dates: start: 201708, end: 201711
  10. PREDNISONE. [Suspect]
     Active Substance: PREDNISONE
     Indication: DIFFUSE LARGE B-CELL LYMPHOMA
     Dosage: 4 CYCLES.
     Route: 065
     Dates: start: 201708, end: 201711
  11. DOXORUBICIN [Suspect]
     Active Substance: DOXORUBICIN
     Indication: DIFFUSE LARGE B-CELL LYMPHOMA
     Dosage: 4 CYCLES.
     Route: 065
     Dates: start: 201708, end: 201711
  12. RITUXIMAB. [Suspect]
     Active Substance: RITUXIMAB
     Indication: DIFFUSE LARGE B-CELL LYMPHOMA
     Dosage: 1ST LINE, 8 CYCLES.
     Route: 041
     Dates: start: 201603, end: 201711

REACTIONS (2)
  - Epstein-Barr virus infection [Unknown]
  - Hepatitis [Unknown]
